FAERS Safety Report 8020174-3 (Version None)
Quarter: 2012Q1

REPORT INFORMATION
  Report Type: 
  Country: None (occurrence: None)
  Receive Date: 20120103
  Receipt Date: 20111010
  Transmission Date: 20120608
  Serious: No
  Sender: FDA-Public Use
  Company Number: US-COVIDIEN/TYCO HEALTHCARE/MALLINCKRODT-T201101856

PATIENT
  Age: 33 Year
  Sex: Female

DRUGS (2)
  1. ANAFRANIL CAP [Suspect]
     Dosage: 50 MG, UNK
     Dates: end: 20110901
  2. LUVOX [Concomitant]
     Dosage: 50 MG, QD
     Dates: start: 20060101, end: 20110909

REACTIONS (1)
  - EXTRASYSTOLES [None]
